FAERS Safety Report 7071695-1 (Version None)
Quarter: 2010Q4

REPORT INFORMATION
  Report Type: 
  Country: None (occurrence: None)
  Receive Date: 20101029
  Receipt Date: 20091006
  Transmission Date: 20110411
  Serious: No
  Sender: FDA-Public Use
  Company Number: A0811011A

PATIENT
  Sex: Female

DRUGS (3)
  1. ADVAIR DISKUS 100/50 [Suspect]
     Route: 055
  2. CHANTIX [Suspect]
     Indication: SMOKING CESSATION THERAPY
  3. SPIRIVA [Suspect]
     Route: 065

REACTIONS (2)
  - ABNORMAL DREAMS [None]
  - NAUSEA [None]
